FAERS Safety Report 14513012 (Version 2)
Quarter: 2018Q1

REPORT INFORMATION
  Report Type: Spontaneous
  Country: US (occurrence: US)
  Receive Date: 20180209
  Receipt Date: 20180329
  Transmission Date: 20180509
  Serious: Yes (Other)
  Sender: FDA-Public Use
  Company Number: US-GREER LABORATORIES, INC.-2041713

PATIENT
  Age: 58 Year
  Sex: Female
  Weight: 127.27 kg

DRUGS (19)
  1. POLLENS - TREES, ELM, AMERICAN ULMUS AMERICANA [Concomitant]
     Active Substance: ULMUS AMERICANA POLLEN
     Route: 058
     Dates: end: 20180122
  2. MIXED VESPID HYMENOPTERA VENOM MULTIDOSE [Concomitant]
     Active Substance: DOLICHOVESPULA ARENARIA VENOM PROTEIN\DOLICHOVESPULA MACULATA VENOM PROTEIN\VESPULA GERMANICA VENOM PROTEIN\VESPULA MACULIFRONS VENOM PROTEIN\VESPULA PENSYLVANICA VENOM PROTEIN\VESPULA SQUAMOSA VENOM PROTEIN\VESPULA VULGARIS VENOM PROTEIN
     Route: 058
  3. PROAIR HFA [Concomitant]
     Active Substance: ALBUTEROL SULFATE
     Route: 058
  4. POLLENS - TREES, WALNUT, BLACK JUGLANS NIGRA [Concomitant]
     Active Substance: JUGLANS NIGRA POLLEN
     Route: 058
     Dates: end: 20180122
  5. POLLENS - TREES, BIRCH, BLACK/SWEET, BETULA LENTA [Suspect]
     Active Substance: BETULA LENTA POLLEN
     Indication: RHINITIS ALLERGIC
     Route: 058
     Dates: end: 20180122
  6. POLLENS - TREES, WILLOW, BLACK SALIX NIGRA [Concomitant]
     Active Substance: SALIX NIGRA POLLEN
     Route: 058
     Dates: end: 20180122
  7. POLLENS - WEEDS AND GARDEN PLANTS, RAGWEED, MIXED AMBROSIA [Concomitant]
     Active Substance: AMBROSIA ARTEMISIIFOLIA POLLEN\AMBROSIA TRIFIDA POLLEN
     Route: 058
     Dates: end: 20180122
  8. MOLDS, RUSTS AND SMUTS, MUCOR PLUMBEUS [Concomitant]
     Route: 058
     Dates: end: 20180122
  9. POLLENS - TREES, COTTONWOOD, EASTERN, POPULUS DELTOIDES [Concomitant]
     Active Substance: POPULUS DELTOIDES POLLEN
     Route: 058
     Dates: end: 20180122
  10. STANDARDIZED MITE, DERMATOPHAGOIDES FARINAE [Concomitant]
     Active Substance: DERMATOPHAGOIDES FARINAE
     Route: 058
     Dates: end: 20180122
  11. MOLDS, RUSTS AND SMUTS, MUCOR PLUMBEUS [Concomitant]
     Route: 058
     Dates: end: 20180122
  12. STANDARDIZED MITE, DERMATOPHAGOIDES PTERONYSSINUS [Concomitant]
     Active Substance: DERMATOPHAGOIDES PTERONYSSINUS
     Route: 058
     Dates: end: 20180122
  13. POLLENS - GRASSES, GS K-O-R-T + SWEET VERNAL MIX [Concomitant]
     Route: 058
     Dates: end: 20180122
  14. WASP HYMENOPTERA VENOM MULTIDOSE [Concomitant]
     Active Substance: POLISTES ANNULARIS VENOM PROTEIN\POLISTES EXCLAMANS VENOM PROTEIN\POLISTES FUSCATUS VENOM PROTEIN\POLISTES METRICUS VENOM PROTEIN
     Route: 058
  15. POLLENS - WEEDS AND GARDEN PLANTS, SAGEBRUSH, MUGWORT ARTEMISIA VULGARIS [Concomitant]
     Active Substance: ARTEMISIA VULGARIS POLLEN
     Route: 058
     Dates: end: 20180122
  16. POLLENS - TREES, BEECH, AMERICAN FAGUS GRANDIFOLIA [Concomitant]
     Active Substance: FAGUS GRANDIFOLIA POLLEN
     Route: 058
     Dates: end: 20180122
  17. POLLENS - TREES, HICKORY, SHAGBARK, CARYA OVATA [Concomitant]
     Route: 058
     Dates: end: 20180122
  18. ZYRTEC [Concomitant]
     Active Substance: CETIRIZINE HYDROCHLORIDE
     Route: 048
  19. POLLENS - TREES, GS EASTERN OAK MIX [Concomitant]
     Active Substance: QUERCUS ALBA POLLEN\QUERCUS RUBRA POLLEN\QUERCUS VELUTINA POLLEN
     Route: 058
     Dates: end: 20180122

REACTIONS (1)
  - Hypersensitivity [Recovered/Resolved]

NARRATIVE: CASE EVENT DATE: 20180111
